FAERS Safety Report 16364142 (Version 3)
Quarter: 2019Q3

REPORT INFORMATION
  Report Type: Report from Study
  Country: GB (occurrence: GB)
  Receive Date: 20190528
  Receipt Date: 20190905
  Transmission Date: 20191004
  Serious: Yes (Hospitalization, Other)
  Sender: FDA-Public Use
  Company Number: GB-SHIRE-GB201912280

PATIENT

DRUGS (3)
  1. VPRIV [Suspect]
     Active Substance: VELAGLUCERASE ALFA
     Indication: GAUCHER^S DISEASE
     Dosage: 1600 INTERNATIONAL UNIT, 1X/2WKS, FORTNIGHTLY
     Route: 042
  2. VPRIV [Suspect]
     Active Substance: VELAGLUCERASE ALFA
     Dosage: 1600 INTERNATIONAL UNIT, 1X/2WKS
     Route: 042
     Dates: start: 20190815
  3. VPRIV [Suspect]
     Active Substance: VELAGLUCERASE ALFA
     Dosage: 1600 INTERNATIONAL UNIT, 1X/2WKS
     Route: 042
     Dates: start: 20150903

REACTIONS (7)
  - Hospitalisation [Recovering/Resolving]
  - Infusion site haemorrhage [Recovered/Resolved]
  - Rectal haemorrhage [Unknown]
  - Infusion site erythema [Recovered/Resolved]
  - Diverticulitis [Unknown]
  - Angiodysplasia [Unknown]
  - Fatigue [Unknown]

NARRATIVE: CASE EVENT DATE: 20190411
